FAERS Safety Report 23160710 (Version 1)
Quarter: 2023Q4

REPORT INFORMATION
  Report Type: Spontaneous
  Country: US (occurrence: US)
  Receive Date: 20231108
  Receipt Date: 20231108
  Transmission Date: 20240110
  Serious: No
  Sender: FDA-Public Use
  Company Number: US-SA-SAC20231031000290

PATIENT
  Age: 30 Year
  Sex: Female

DRUGS (1)
  1. DUPIXENT [Suspect]
     Active Substance: DUPILUMAB
     Dosage: 300 MG, QOW
     Route: 058

REACTIONS (6)
  - Dry skin [Recovered/Resolved]
  - Therapeutic response shortened [Recovered/Resolved]
  - Lacrimation increased [Unknown]
  - Eyelid skin dryness [Unknown]
  - Dry eye [Unknown]
  - Product dose omission in error [Unknown]
